FAERS Safety Report 8985709 (Version 1)
Quarter: 2012Q4

REPORT INFORMATION
  Report Type: 
  Country: US (occurrence: US)
  Receive Date: 20121226
  Receipt Date: 20121226
  Transmission Date: 20130627
  Serious: No
  Sender: FDA-Public Use
  Company Number: US-VERTEX PHARMACEUTICALS INC.-2012-026543

PATIENT
  Sex: Male
  Weight: 73 kg

DRUGS (6)
  1. VX-950 (TELAPREVIR) [Suspect]
     Indication: HEPATITIS C
     Dosage: 750 mg, tid
     Route: 048
     Dates: start: 20121010
  2. PEGASYS [Suspect]
     Indication: HEPATITIS C
     Dosage: 180 ?g, qw
     Route: 058
     Dates: start: 20121010
  3. RIBAPAK [Suspect]
     Indication: HEPATITIS C
     Dosage: 600 mg, bid
     Route: 048
     Dates: start: 20121010
  4. AMLODIPINE BESYLATE [Concomitant]
     Dosage: 10 mg, qd
     Route: 048
     Dates: start: 20121008
  5. LISINOPRIL [Concomitant]
     Dosage: 20 mg, qd
     Route: 048
     Dates: start: 20121008
  6. ASPIRIN [Concomitant]
     Dosage: 81 mg, qd
     Route: 048
     Dates: start: 20121008

REACTIONS (2)
  - Lethargy [Not Recovered/Not Resolved]
  - Asthenia [Not Recovered/Not Resolved]
